FAERS Safety Report 25140869 (Version 1)
Quarter: 2025Q1

REPORT INFORMATION
  Report Type: Spontaneous
  Country: US (occurrence: US)
  Receive Date: 20250331
  Receipt Date: 20250331
  Transmission Date: 20250409
  Serious: No
  Sender: Kenvue
  Company Number: US-KENVUE-20250309267

PATIENT

DRUGS (5)
  1. ZYRTEC [Suspect]
     Active Substance: CETIRIZINE HYDROCHLORIDE
     Indication: Sinus congestion
     Route: 065
  2. MUCINEX D [Concomitant]
     Active Substance: GUAIFENESIN\PSEUDOEPHEDRINE HYDROCHLORIDE
     Indication: Sinus congestion
     Route: 065
  3. Astapro [Concomitant]
     Indication: Sinus congestion
     Route: 065
  4. saline rinses [Concomitant]
     Indication: Sinus congestion
     Route: 065
  5. VISINE A MULTI-ACTION EYE ALLERGY RELIEF [Concomitant]
     Active Substance: NAPHAZOLINE HYDROCHLORIDE\PHENIRAMINE MALEATE
     Indication: Sinus congestion
     Route: 045
     Dates: start: 20250226

REACTIONS (2)
  - Product use in unapproved indication [Unknown]
  - Therapeutic response unexpected [Unknown]
